FAERS Safety Report 16313649 (Version 1)
Quarter: 2019Q2

REPORT INFORMATION
  Report Type: Spontaneous
  Country: US (occurrence: US)
  Receive Date: 20190515
  Receipt Date: 20190515
  Transmission Date: 20190711
  Serious: Yes (Other)
  Sender: FDA-Public Use
  Company Number: US-PFIZER INC-2019196767

PATIENT
  Sex: Female

DRUGS (7)
  1. LYRICA [Suspect]
     Active Substance: PREGABALIN
     Dosage: 75 MG, 2X/DAY
     Route: 048
  2. LYRICA [Suspect]
     Active Substance: PREGABALIN
     Dosage: 200 MG, 2X/DAY
     Route: 048
  3. MAGNESIUM OXIDE. [Suspect]
     Active Substance: MAGNESIUM OXIDE
     Dosage: 400 MG, DAILY
     Route: 048
  4. BACLOFEN. [Suspect]
     Active Substance: BACLOFEN
     Dosage: 10 MG, 3X/DAY
  5. METFORMIN HCL [Suspect]
     Active Substance: METFORMIN HYDROCHLORIDE
     Dosage: 500 MG, 2X/DAY
     Route: 048
  6. LISINOPRIL. [Suspect]
     Active Substance: LISINOPRIL
     Dosage: 10 MG, DAILY
  7. OMEPRAZOLE. [Suspect]
     Active Substance: OMEPRAZOLE
     Dosage: 40 MG, 1X/DAY(EXTENDED RELEASE 2 CAPSULE AT BEDTIME)

REACTIONS (16)
  - Osteoarthritis [Unknown]
  - Gastrooesophageal reflux disease [Unknown]
  - Spinal deformity [Unknown]
  - Type 2 diabetes mellitus [Unknown]
  - Spinal osteoarthritis [Unknown]
  - Obesity [Unknown]
  - Fatigue [Unknown]
  - Hypertension [Unknown]
  - Back pain [Unknown]
  - Neuropathy peripheral [Unknown]
  - Abdominal pain [Unknown]
  - Hypomagnesaemia [Unknown]
  - Vitamin D deficiency [Unknown]
  - Syncope [Unknown]
  - Hyperlipidaemia [Unknown]
  - Arthralgia [Unknown]
